FAERS Safety Report 9449172 (Version 2)
Quarter: 2013Q3

REPORT INFORMATION
  Report Type: Spontaneous
  Country: US (occurrence: US)
  Receive Date: 20130806
  Receipt Date: 20130822
  Transmission Date: 20140515
  Serious: Yes (Hospitalization)
  Sender: FDA-Public Use
  Company Number: US-ACCORD-018817

PATIENT
  Age: 50 Year
  Sex: Male

DRUGS (3)
  1. AMLODIPINE [Suspect]
     Dosage: 500 MG
  2. HYDROCHLOROTHIAZIDE [Suspect]
     Dosage: 625 MG
  3. LISINOPRIL [Suspect]
     Dosage: 1000 MG

REACTIONS (7)
  - Suicide attempt [Unknown]
  - Overdose [Unknown]
  - Respiratory failure [Recovering/Resolving]
  - Shock [Recovering/Resolving]
  - Renal failure [Unknown]
  - Staphylococcal bacteraemia [Unknown]
  - Pericardial effusion [Unknown]
